FAERS Safety Report 9369817 (Version 2)
Quarter: 2013Q3

REPORT INFORMATION
  Report Type: Spontaneous
  Country: GB (occurrence: GB)
  Receive Date: 20130626
  Receipt Date: 20130806
  Transmission Date: 20140515
  Serious: Yes (Other)
  Sender: FDA-Public Use
  Company Number: GB-JNJFOC-20130616823

PATIENT
  Age: 70 Year
  Sex: Female

DRUGS (5)
  1. INFLIXIMAB, RECOMBINANT [Suspect]
     Indication: CROHN^S DISEASE
     Route: 042
  2. METHOTREXATE [Suspect]
     Indication: CROHN^S DISEASE
     Route: 065
  3. AZATHIOPRINE [Suspect]
     Indication: CROHN^S DISEASE
     Route: 065
  4. METHOTREXATE [Suspect]
     Indication: CROHN^S DISEASE
     Route: 048
  5. ADALIMUMAB [Suspect]
     Indication: CROHN^S DISEASE
     Route: 065
     Dates: end: 200606

REACTIONS (1)
  - Non-small cell lung cancer [Unknown]
